FAERS Safety Report 9272774 (Version 1)
Quarter: 2013Q2

REPORT INFORMATION
  Report Type: Spontaneous
  Country: None (occurrence: US)
  Receive Date: 20130506
  Receipt Date: 20130506
  Transmission Date: 20140414
  Serious: No
  Sender: FDA-Public Use
  Company Number: US-TEVA-403241USA

PATIENT
  Sex: 0

DRUGS (2)
  1. NUVIGIL [Suspect]
  2. ANTIDEPRESSANTS [Concomitant]

REACTIONS (1)
  - Somnolence [Unknown]
